FAERS Safety Report 8595528-7 (Version None)
Quarter: 2012Q3

REPORT INFORMATION
  Report Type: 
  Country: None (occurrence: None)
  Receive Date: 20120815
  Receipt Date: 20120809
  Transmission Date: 20120928
  Serious: Yes (Other)
  Sender: FDA-Public Use
  Company Number: US-TEVA-348789USA

PATIENT
  Sex: Male

DRUGS (6)
  1. TRAMADOL HCL [Interacting]
  2. LOSARTAN POTASSIUM [Suspect]
     Dates: start: 20120101
  3. BYSTOLIC [Interacting]
     Dates: start: 20120101, end: 20120101
  4. EFEDRIN [Interacting]
  5. TRAMADOL HCL [Interacting]
     Dosage: 300 MILLIGRAM DAILY;
  6. THEOPHYLLINE [Interacting]
     Dates: end: 20120101

REACTIONS (10)
  - HEADACHE [None]
  - INCORRECT DOSE ADMINISTERED [None]
  - DISCOMFORT [None]
  - FEELING ABNORMAL [None]
  - PSYCHIATRIC SYMPTOM [None]
  - DRUG INTERACTION [None]
  - DRUG INEFFECTIVE [None]
  - LOSS OF CONSCIOUSNESS [None]
  - ABNORMAL BEHAVIOUR [None]
  - EMOTIONAL DISTRESS [None]
